FAERS Safety Report 10243821 (Version 1)
Quarter: 2014Q2

REPORT INFORMATION
  Report Type: Spontaneous
  Country: US (occurrence: None)
  Receive Date: 20140616
  Receipt Date: 20140616
  Transmission Date: 20141212
  Serious: No
  Sender: FDA-Public Use
  Company Number: None

PATIENT
  Age: 36 Year
  Sex: Female
  Weight: 61.24 kg

DRUGS (1)
  1. LYRICA [Suspect]
     Indication: NEURALGIA
     Route: 048
     Dates: start: 20140523

REACTIONS (11)
  - Hallucination [None]
  - Speech disorder [None]
  - Aphasia [None]
  - Urinary retention [None]
  - Coordination abnormal [None]
  - Thinking abnormal [None]
  - Vision blurred [None]
  - Bradyphrenia [None]
  - Impaired driving ability [None]
  - Hypersomnia [None]
  - Euphoric mood [None]
